FAERS Safety Report 6255287-X (Version None)
Quarter: 2009Q3

REPORT INFORMATION
  Report Type: 
  Country: None (occurrence: None)
  Receive Date: 20090702
  Receipt Date: 20090622
  Transmission Date: 20100115
  Serious: Yes (Death)
  Sender: FDA-Public Use
  Company Number: DE-BAXTER-2009BH010572

PATIENT
  Age: 19 Year
  Sex: Male

DRUGS (3)
  1. IFOSFAMIDE [Suspect]
     Indication: TESTICULAR NEOPLASM
     Route: 065
  2. ETOPOSIDE [Suspect]
     Indication: TESTICULAR NEOPLASM
     Route: 065
  3. CISPLATIN [Suspect]
     Indication: TESTICULAR NEOPLASM
     Route: 065

REACTIONS (1)
  - ACUTE RESPIRATORY DISTRESS SYNDROME [None]
